FAERS Safety Report 7746415-5 (Version None)
Quarter: 2011Q3

REPORT INFORMATION
  Report Type: 
  Country: None (occurrence: None)
  Receive Date: 20110913
  Receipt Date: 20110913
  Transmission Date: 20111222
  Serious: Yes (Life-Threatening, Hospitalization)
  Sender: FDA-Public Use
  Company Number: None

PATIENT
  Age: 19 Year
  Sex: Female
  Weight: 61.234 kg

DRUGS (1)
  1. BEYAZ [Suspect]
     Indication: ACNE
     Dosage: 1 TABLET
     Route: 048
     Dates: start: 20110601, end: 20110813

REACTIONS (1)
  - PULMONARY EMBOLISM [None]
